FAERS Safety Report 9382913 (Version 1)
Quarter: 2013Q3

REPORT INFORMATION
  Report Type: Spontaneous
  Country: FR (occurrence: FR)
  Receive Date: 20130703
  Receipt Date: 20130703
  Transmission Date: 20140515
  Serious: Yes (Life-Threatening)
  Sender: FDA-Public Use
  Company Number: FR-BAXTER-2013BAX024392

PATIENT
  Age: 73 Year
  Sex: Female

DRUGS (10)
  1. SEVOFLURANE [Suspect]
     Indication: PROSTHESIS IMPLANTATION
     Route: 055
     Dates: start: 20121116, end: 20121116
  2. SUFENTANIL [Suspect]
     Indication: PROSTHESIS IMPLANTATION
     Route: 042
     Dates: start: 20121116, end: 20121116
  3. PROPOFOL [Suspect]
     Indication: PROSTHESIS IMPLANTATION
     Route: 042
     Dates: start: 20121116, end: 20121116
  4. NIMBEX [Suspect]
     Indication: PROSTHESIS IMPLANTATION
     Route: 042
     Dates: start: 20121116, end: 20121116
  5. HEPARINE SODIQUE [Suspect]
     Indication: PROSTHESIS IMPLANTATION
     Route: 042
     Dates: start: 20121116, end: 20121120
  6. HEPARINE SODIQUE [Suspect]
     Route: 042
     Dates: start: 20121117, end: 20121120
  7. HYPNOMIDATE [Suspect]
     Indication: PROSTHESIS IMPLANTATION
     Route: 042
     Dates: start: 20121116, end: 20121116
  8. CEFAMANDOLE [Suspect]
     Indication: PROSTHESIS IMPLANTATION
     Route: 042
     Dates: start: 20121116, end: 20121116
  9. PROTAMINE [Suspect]
     Indication: PROSTHESIS IMPLANTATION
     Route: 042
     Dates: start: 20121116, end: 20121116
  10. PROTAMINE [Suspect]
     Route: 042
     Dates: start: 20121116, end: 20121116

REACTIONS (8)
  - Systemic inflammatory response syndrome [Recovered/Resolved with Sequelae]
  - Haemodynamic instability [Recovered/Resolved]
  - Pleural effusion [Recovered/Resolved with Sequelae]
  - Atelectasis [Recovered/Resolved with Sequelae]
  - Altered state of consciousness [Unknown]
  - Blood pressure systolic decreased [Unknown]
  - Hyperthermia [Unknown]
  - Atrial fibrillation [Unknown]
